FAERS Safety Report 12403544 (Version 4)
Quarter: 2018Q2

REPORT INFORMATION
  Report Type: Report from Study
  Country: BR (occurrence: BR)
  Receive Date: 20160525
  Receipt Date: 20180523
  Transmission Date: 20180711
  Serious: Yes (Other)
  Sender: FDA-Public Use
  Company Number: PHHY2016BR070999

PATIENT
  Sex: Female
  Weight: 35 kg

DRUGS (5)
  1. SANDOSTATIN LAR DEPOT [Suspect]
     Active Substance: OCTREOTIDE ACETATE
     Indication: NEUROENDOCRINE TUMOUR
     Dosage: 40 MG, ONCE/SINGLE
     Route: 065
     Dates: start: 201603
  2. AFINITOR [Suspect]
     Active Substance: EVEROLIMUS
     Indication: METASTASES TO PANCREAS
  3. SANDOSTATIN LAR DEPOT [Suspect]
     Active Substance: OCTREOTIDE ACETATE
     Indication: LUNG CANCER METASTATIC
     Dosage: 30 MG, QMO/EVERY 28 DAYS
     Route: 030
     Dates: start: 2012
  4. AFINITOR [Suspect]
     Active Substance: EVEROLIMUS
     Indication: NEUROENDOCRINE TUMOUR
     Dosage: 10 MG, QD
     Route: 065
  5. AFINITOR [Suspect]
     Active Substance: EVEROLIMUS
     Indication: METASTASES TO SALIVARY GLAND
     Dosage: 1 DF, QD
     Route: 065
     Dates: start: 20160513

REACTIONS (17)
  - Metastases to pancreas [Recovering/Resolving]
  - Incorrect dose administered [Unknown]
  - Product use in unapproved indication [Unknown]
  - Salivary gland mass [Recovering/Resolving]
  - Drug ineffective [Unknown]
  - Sciatic nerve injury [Recovered/Resolved]
  - Weight decreased [Recovering/Resolving]
  - Fatigue [Unknown]
  - Metastases to salivary gland [Recovering/Resolving]
  - Malaise [Unknown]
  - Mass [Unknown]
  - Diabetes mellitus [Unknown]
  - Bile duct obstruction [Recovering/Resolving]
  - Asthenia [Unknown]
  - Pain in extremity [Recovering/Resolving]
  - Malnutrition [Unknown]
  - Injection site pain [Recovered/Resolved]

NARRATIVE: CASE EVENT DATE: 2012
